FAERS Safety Report 7712370-7 (Version None)
Quarter: 2011Q3

REPORT INFORMATION
  Report Type: 
  Country: None (occurrence: None)
  Receive Date: 20110823
  Receipt Date: 20110808
  Transmission Date: 20111222
  Serious: Yes (Other)
  Sender: FDA-Public Use
  Company Number: 7075495

PATIENT
  Age: 45 Year
  Sex: Female

DRUGS (8)
  1. LEVOTHYROXINE SODIUM [Suspect]
     Indication: PRODUCT USED FOR UNKNOWN INDICATION
  2. LEXOMIL (BROMAZEPAM) (BROMAZEPAM) [Suspect]
     Indication: PRODUCT USED FOR UNKNOWN INDICATION
  3. UN-ALFA (ALFACALCIDOL) (ALFACALCIDOL) [Suspect]
     Indication: PRODUCT USED FOR UNKNOWN INDICATION
  4. VANDETANIB [Suspect]
     Indication: THYROID CANCER
     Dates: start: 20110516
  5. CALCIUM-D3 (CALCIUM CARBONATE, COLECALCIFEROL) [Concomitant]
  6. CANDESARTAN CILEXETIL [Suspect]
     Indication: PRODUCT USED FOR UNKNOWN INDICATION
  7. PAROXETINE HYDROCHLORIDE [Suspect]
     Indication: PRODUCT USED FOR UNKNOWN INDICATION
  8. ZOPICLONE (ZOPICLONE) [Suspect]
     Indication: PRODUCT USED FOR UNKNOWN INDICATION

REACTIONS (1)
  - ELECTROCARDIOGRAM QT PROLONGED [None]
